FAERS Safety Report 15046122 (Version 1)
Quarter: 2018Q2

REPORT INFORMATION
  Report Type: Spontaneous
  Country: DK (occurrence: DK)
  Receive Date: 20180621
  Receipt Date: 20180621
  Transmission Date: 20180711
  Serious: Yes (Life-Threatening)
  Sender: FDA-Public Use
  Company Number: DK-TEVA-2018-DK-910033

PATIENT
  Age: 68 Year
  Sex: Male

DRUGS (17)
  1. VITAMIN B [Concomitant]
     Active Substance: VITAMIN B
     Indication: PRODUCT USED FOR UNKNOWN INDICATION
     Dosage: 1 DOSAGE FORMS DAILY;
     Route: 048
     Dates: start: 20150114
  2. LANTHANUM [Concomitant]
     Active Substance: LANTHANUM
     Indication: HYPERPHOSPHATAEMIA
     Dosage: 3000 MILLIGRAM DAILY;
     Route: 048
     Dates: start: 20160404
  3. ZOPICLONE [Concomitant]
     Active Substance: ZOPICLONE
     Indication: INSOMNIA
     Dosage: POTENCY: 3.75 MG. DOSE: 2 TABLETS AS NEEDED, MAXIMUM ONCE DAILY
     Route: 048
     Dates: start: 20141128
  4. OXYCODONHYDROCHLORID ^LANNACHER^ [Suspect]
     Active Substance: OXYCODONE HYDROCHLORIDE
     Indication: PAIN
     Dosage: 10 MILLIGRAM DAILY;  LAST DOSE GIVEN 19MAR2018 KL. 08:30
     Route: 048
     Dates: start: 20180315, end: 20180319
  5. ALLOPURINOL. [Concomitant]
     Active Substance: ALLOPURINOL
     Indication: GOUT
     Dosage: 100 MILLIGRAM DAILY;
     Route: 048
     Dates: start: 20160719
  6. ASCORBIC ACID. [Concomitant]
     Active Substance: ASCORBIC ACID
     Indication: PRODUCT USED FOR UNKNOWN INDICATION
     Dosage: 80 MILLIGRAM DAILY;
     Route: 048
     Dates: start: 20150114
  7. PARACETAMOL [Concomitant]
     Active Substance: ACETAMINOPHEN
     Indication: PAIN
     Dosage: POTENCY: 500 MG. DOSE: 2 TABLETS, IF NECESSARY, NOT MORE THAN 4 TIMES DAILY
     Route: 048
     Dates: start: 20150202
  8. OXYNORM [Suspect]
     Active Substance: OXYCODONE HYDROCHLORIDE
     Indication: PAIN
     Dosage: 5 MILLIGRAM DAILY; 5 MG GIVEN ON 18MAR2018
     Route: 042
     Dates: start: 20180318, end: 20180318
  9. QUININE [Concomitant]
     Active Substance: QUININE
     Indication: MUSCLE SPASMS
     Dosage: POTENCY: 100 MG. DOSE: 1 TABLET NOT MORE THAN TWICE DAILY (TAKEN TO NIGHT)
     Route: 048
     Dates: start: 20170206
  10. CINACALCET. [Concomitant]
     Active Substance: CINACALCET
     Indication: PRODUCT USED FOR UNKNOWN INDICATION
     Dosage: STRENGTH AND DOSE: UNKNOWN
     Route: 048
  11. SODIUM VALPROATE [Concomitant]
     Active Substance: VALPROATE SODIUM
     Indication: EPILEPSY
     Dosage: 600 MILLIGRAM DAILY;
     Route: 048
     Dates: start: 20160530
  12. RIVAROXABAN [Concomitant]
     Active Substance: RIVAROXABAN
     Indication: THROMBOSIS PROPHYLAXIS
     Dosage: 10 MILLIGRAM DAILY;
     Route: 048
     Dates: start: 20171211
  13. BETNOVAT MED CHINOFORM [Concomitant]
     Indication: ECZEMA INFECTED
     Dosage: 1 DOSAGE FORMS DAILY; STRENGTH: 1 + 30 MG/G. DOSE: 1 MORNING LUBRICATION
     Route: 003
     Dates: start: 20170821
  14. MACROGOL [Concomitant]
     Active Substance: POLYETHYLENE GLYCOLS
     Indication: CONSTIPATION
     Dosage: 1 DOSAGE FORMS DAILY;
     Route: 048
     Dates: start: 20160914
  15. OXYCODONE TEVA [Suspect]
     Active Substance: OXYCODONE HYDROCHLORIDE
     Indication: PAIN
     Dosage: DOSE: 5 MG WHEN NEEDED. 2 CAPSULES GIVEN 15MAR2018 AND 1 CAPSULE 18MAR2018
     Route: 048
     Dates: start: 20180315, end: 20180318
  16. FOLSYRE [Concomitant]
     Indication: ADVERSE DRUG REACTION
     Dosage: 5 MILLIGRAM DAILY;
     Route: 048
     Dates: start: 20150114
  17. PANTOPRAZOLE [Concomitant]
     Active Substance: PANTOPRAZOLE
     Indication: GASTROOESOPHAGEAL REFLUX DISEASE
     Dosage: 40 MILLIGRAM DAILY;
     Route: 048
     Dates: start: 20141113

REACTIONS (4)
  - Apnoea [Not Recovered/Not Resolved]
  - Respiratory failure [Recovered/Resolved]
  - Unresponsive to stimuli [Recovered/Resolved]
  - Depressed level of consciousness [Recovered/Resolved]

NARRATIVE: CASE EVENT DATE: 20180319
